FAERS Safety Report 7118310-6 (Version None)
Quarter: 2010Q4

REPORT INFORMATION
  Report Type: 
  Country: None (occurrence: None)
  Receive Date: 20101123
  Receipt Date: 20101122
  Transmission Date: 20110411
  Serious: Yes (Death)
  Sender: FDA-Public Use
  Company Number: IT-SANOFI-AVENTIS-2010SA067338

PATIENT
  Age: 57 Year
  Sex: Male

DRUGS (7)
  1. TAXOTERE [Suspect]
     Indication: LUNG ADENOCARCINOMA
     Route: 041
     Dates: start: 20100430, end: 20100430
  2. TAXOTERE [Suspect]
     Route: 041
     Dates: start: 20100813, end: 20100813
  3. TAXOTERE [Suspect]
     Route: 041
     Dates: start: 20100715, end: 20100715
  4. FLEBOCORTID RICHTER [Concomitant]
     Indication: DYSPNOEA
     Route: 042
     Dates: start: 20100514, end: 20100813
  5. TRIMETON [Concomitant]
     Indication: PREMEDICATION
     Route: 030
     Dates: start: 20100430, end: 20100813
  6. DEXAMETHASONE [Concomitant]
     Indication: PREMEDICATION
     Route: 042
     Dates: start: 20100430, end: 20100813
  7. DELTACORTENE [Concomitant]
     Route: 048
     Dates: start: 20100423, end: 20100813

REACTIONS (6)
  - ACUTE RESPIRATORY FAILURE [None]
  - COUGH [None]
  - DYSPNOEA [None]
  - INFLAMMATION [None]
  - PYREXIA [None]
  - RESPIRATORY FAILURE [None]
